FAERS Safety Report 5312817-X (Version None)
Quarter: 2007Q2

REPORT INFORMATION
  Report Type: 
  Country: None (occurrence: None)
  Receive Date: 20070424
  Receipt Date: 20070410
  Transmission Date: 20071010
  Serious: Yes (Hospitalization)
  Sender: FDA-Public Use
  Company Number: 231106K07USA

PATIENT
  Age: 59 Year
  Sex: Female

DRUGS (13)
  1. REBIF [Suspect]
     Indication: MULTIPLE SCLEROSIS
     Dosage: 44 MCG, 3 IN 1 WEEKS, SUBCUTANEOUS
     Route: 058
     Dates: start: 20061006, end: 20070120
  2. REBIF [Suspect]
     Indication: MULTIPLE SCLEROSIS
     Dosage: 44 MCG, 3 IN 1 WEEKS, SUBCUTANEOUS
     Route: 058
     Dates: start: 20070212, end: 20070201
  3. ATENOLOL [Suspect]
     Dates: end: 20070101
  4. ATENOLOL [Suspect]
     Dates: start: 20070101
  5. WARFARIN (WARFARIN /0014801/) [Concomitant]
  6. DITROPAN XL (OXYBUTYNIN /00538901/) [Concomitant]
  7. TIZANIDINE HCL [Concomitant]
  8. CALTRATE PLUS VITAMIN D WITH MINERALS (CALTRATE PLUS) [Concomitant]
  9. CENTRUM SILVER THERAPEUTIC MULTIPLE VITAMINS WITH MINERALS (CENTRUM SI [Concomitant]
  10. FLONASE [Concomitant]
  11. FOSAMAX [Concomitant]
  12. IMITREX [Concomitant]
  13. ZETIA [Concomitant]

REACTIONS (9)
  - ATRIOVENTRICULAR BLOCK COMPLETE [None]
  - BLOOD PRESSURE INADEQUATELY CONTROLLED [None]
  - DYSPNOEA [None]
  - EYE ROLLING [None]
  - HYPERTENSION [None]
  - NAUSEA [None]
  - PAIN IN EXTREMITY [None]
  - PROCEDURAL PAIN [None]
  - SYNCOPE [None]
